FAERS Safety Report 4382641-3 (Version None)
Quarter: 2004Q2

REPORT INFORMATION
  Report Type: 
  Country: None (occurrence: None)
  Receive Date: 20040622
  Receipt Date: 20040331
  Transmission Date: 20050107
  Serious: Yes (Hospitalization)
  Sender: FDA-Public Use
  Company Number: JP-GLAXOSMITHKLINE-B0328796A

PATIENT
  Age: 33 Year
  Sex: Male
  Weight: 70 kg

DRUGS (2)
  1. IMIGRAN [Suspect]
     Indication: MIGRAINE WITHOUT AURA
     Dosage: 3MG PER DAY
     Route: 058
     Dates: start: 20040325, end: 20040326
  2. IMIGRAN [Suspect]
     Dosage: 20MG PER DAY
     Route: 045
     Dates: start: 20040326, end: 20040326

REACTIONS (5)
  - CSF WHITE BLOOD CELL COUNT POSITIVE [None]
  - HEADACHE [None]
  - MENINGITIS [None]
  - PYREXIA [None]
  - VOMITING [None]
